FAERS Safety Report 17244221 (Version 1)
Quarter: 2020Q1

REPORT INFORMATION
  Report Type: Spontaneous
  Country: US (occurrence: US)
  Receive Date: 20200107
  Receipt Date: 20200107
  Transmission Date: 20200409
  Serious: Yes (Other)
  Sender: FDA-Public Use
  Company Number: US-UNITED THERAPEUTICS-UNT-2019-017812

PATIENT
  Age: 67 Year
  Sex: Male
  Weight: 70.3 kg

DRUGS (5)
  1. REMODULIN [Suspect]
     Active Substance: TREPROSTINIL
     Indication: PULMONARY ARTERIAL HYPERTENSION
     Dosage: 0.090 ?G/KG, CONTINUING
     Route: 041
     Dates: start: 20190916
  2. TADALAFIL. [Concomitant]
     Active Substance: TADALAFIL
     Indication: PRODUCT USED FOR UNKNOWN INDICATION
     Dosage: UNK
     Route: 065
  3. LETAIRIS [Concomitant]
     Active Substance: AMBRISENTAN
     Indication: PRODUCT USED FOR UNKNOWN INDICATION
     Route: 065
  4. REMODULIN [Suspect]
     Active Substance: TREPROSTINIL
     Dosage: 0.109 ?G/KG, CONTINUING
     Route: 041
     Dates: start: 2019
  5. REMODULIN [Suspect]
     Active Substance: TREPROSTINIL
     Dosage: UNK, CONTINUING
     Route: 041

REACTIONS (8)
  - Pulmonary hypertension [Unknown]
  - Joint swelling [Unknown]
  - Injection site discomfort [Unknown]
  - Dizziness [Unknown]
  - Peripheral swelling [Unknown]
  - Dyspnoea [Unknown]
  - Fatigue [Unknown]
  - Swelling [Unknown]

NARRATIVE: CASE EVENT DATE: 2019
